FAERS Safety Report 5643744-6 (Version None)
Quarter: 2008Q1

REPORT INFORMATION
  Report Type: 
  Country: None (occurrence: None)
  Receive Date: 20080228
  Receipt Date: 20080219
  Transmission Date: 20080703
  Serious: Yes (Life-Threatening, Other)
  Sender: FDA-Public Use
  Company Number: GB-PFIZER INC-2008016812

PATIENT
  Age: 51 Year
  Sex: Female

DRUGS (3)
  1. CHANTIX [Suspect]
     Indication: SMOKING CESSATION THERAPY
     Route: 048
     Dates: start: 20080129, end: 20080204
  2. SIMVASTATIN [Concomitant]
     Route: 048
  3. ESTROGENS [Concomitant]

REACTIONS (1)
  - ANAPHYLACTIC REACTION [None]
